FAERS Safety Report 23451349 (Version 1)
Quarter: 2024Q1

REPORT INFORMATION
  Report Type: Spontaneous
  Country: US (occurrence: None)
  Receive Date: 20240126
  Receipt Date: 20240126
  Transmission Date: 20240409
  Serious: No
  Sender: FDA-Public Use
  Company Number: None

PATIENT
  Sex: Female

DRUGS (7)
  1. AMBRISENTAN [Suspect]
     Active Substance: AMBRISENTAN
     Indication: Pulmonary arterial hypertension
     Dosage: 5MG DAILY ORAL?
     Route: 048
     Dates: start: 201908
  2. ADEMPAS [Concomitant]
     Active Substance: RIOCIGUAT
  3. TRIAMCINOLONE ACET CRM [Concomitant]
  4. REMODULIN [Concomitant]
     Active Substance: TREPROSTINIL
  5. REMTY WNTY RPLMT PUMP KIT [Concomitant]
  6. LIDOCAINE/PRILOCAINE CRM [Concomitant]
  7. REMUNITY CART W/FILL AID [Concomitant]

REACTIONS (1)
  - Incorrect dose administered [None]
